FAERS Safety Report 18855308 (Version 1)
Quarter: 2021Q1

REPORT INFORMATION
  Report Type: Spontaneous
  Country: US (occurrence: US)
  Receive Date: 20210205
  Receipt Date: 20210205
  Transmission Date: 20210420
  Serious: No
  Sender: FDA-Public Use
  Company Number: US-009507513-2102USA001922

PATIENT
  Age: 66 Year
  Sex: Female

DRUGS (3)
  1. KEYTRUDA [Suspect]
     Active Substance: PEMBROLIZUMAB
     Dosage: SECOND INFUSION
     Dates: start: 20210202
  2. LENVATINIB MESYLATE [Suspect]
     Active Substance: LENVATINIB MESYLATE
     Indication: ENDOMETRIAL CANCER
     Dosage: 12 MILLIGRAM, ONCE DAILY
     Route: 048
     Dates: start: 20210125
  3. KEYTRUDA [Suspect]
     Active Substance: PEMBROLIZUMAB
     Indication: ENDOMETRIAL CANCER
     Dosage: FIRST INFUSION

REACTIONS (4)
  - Hypertension [Unknown]
  - White blood cell count decreased [Unknown]
  - Fatigue [Unknown]
  - Pain [Unknown]

NARRATIVE: CASE EVENT DATE: 20210202
